FAERS Safety Report 15194246 (Version 1)
Quarter: 2018Q3

REPORT INFORMATION
  Report Type: Spontaneous
  Country: US (occurrence: US)
  Receive Date: 20180725
  Receipt Date: 20180725
  Transmission Date: 20181010
  Serious: Yes (Hospitalization, Other)
  Sender: FDA-Public Use
  Company Number: US-AUROBINDO-AUR-APL-2018-036114

PATIENT
  Age: 32 Year
  Sex: Male

DRUGS (3)
  1. PARACETAMOL CODEINE [Suspect]
     Active Substance: ACETAMINOPHEN\CODEINE PHOSPHATE
     Indication: POSTOPERATIVE ANALGESIA
     Dosage: UNK
     Route: 048
  2. HYDROCORTISONE. [Concomitant]
     Active Substance: HYDROCORTISONE
     Indication: RASH
     Dosage: EVERY 6 HOURS1 DOSAGE FORM
  3. ACETAMINOPHEN AND CODEINE PHOSPHATE TABLETS USP 300 MG/30 MG [Suspect]
     Active Substance: ACETAMINOPHEN\CODEINE PHOSPHATE
     Indication: RASH
     Dosage: 1 DOSAGE FORM, EVERY 6 HOURS
     Route: 048

REACTIONS (4)
  - Pyrexia [Recovered/Resolved]
  - Acute febrile neutrophilic dermatosis [Recovered/Resolved]
  - Anaemia [Recovered/Resolved]
  - Rash erythematous [Recovered/Resolved]
